FAERS Safety Report 10059768 (Version 1)
Quarter: 2014Q2

REPORT INFORMATION
  Report Type: Spontaneous
  Country: DE (occurrence: DE)
  Receive Date: 20140404
  Receipt Date: 20140404
  Transmission Date: 20141212
  Serious: Yes (Hospitalization, Disabling)
  Sender: FDA-Public Use
  Company Number: DE-ASTRAZENECA-2014SE21487

PATIENT
  Age: 21 Year
  Sex: Female
  Weight: 50 kg

DRUGS (2)
  1. NEXIUM MUPS [Suspect]
     Indication: VARICELLA
     Route: 048
     Dates: start: 2003
  2. VALTREX [Interacting]
     Indication: VARICELLA
     Route: 065
     Dates: start: 2003

REACTIONS (5)
  - Drug interaction [Unknown]
  - Panic attack [Unknown]
  - Suicidal ideation [Unknown]
  - Mucosal inflammation [Unknown]
  - Hyperacusis [Unknown]
